FAERS Safety Report 7243581-5 (Version None)
Quarter: 2011Q1

REPORT INFORMATION
  Report Type: 
  Country: None (occurrence: None)
  Receive Date: 20110125
  Receipt Date: 20110113
  Transmission Date: 20110831
  Serious: Yes (Other)
  Sender: FDA-Public Use
  Company Number: PHHY2010FR71118

PATIENT
  Sex: Female
  Weight: 90 kg

DRUGS (4)
  1. ACLASTA [Suspect]
     Indication: OSTEOPOROSIS
     Dosage: 5MG
     Dates: start: 20100210
  2. VOLTAREN [Concomitant]
     Indication: BACK PAIN
     Dosage: 50 MG BID TO TID
     Route: 048
     Dates: start: 20091201, end: 20100211
  3. PARACETAMOL [Concomitant]
  4. CODEINE [Concomitant]
     Indication: BACK PAIN
     Dosage: 500 MG BID TO TID
     Dates: start: 20091201

REACTIONS (9)
  - ASTHENIA [None]
  - HAEMATURIA [None]
  - RENAL FAILURE ACUTE [None]
  - BLOOD PRESSURE INCREASED [None]
  - PYREXIA [None]
  - ARTHRALGIA [None]
  - RENAL TUBULAR NECROSIS [None]
  - DEHYDRATION [None]
  - BLOOD CREATININE INCREASED [None]
